FAERS Safety Report 7764865-8 (Version None)
Quarter: 2011Q3

REPORT INFORMATION
  Report Type: 
  Country: None (occurrence: None)
  Receive Date: 20110919
  Receipt Date: 20110912
  Transmission Date: 20111222
  Serious: Yes (Life-Threatening)
  Sender: FDA-Public Use
  Company Number: 2011SP043004

PATIENT
  Age: 45 Year
  Sex: Female

DRUGS (1)
  1. SAPHRIS [Suspect]
     Indication: PRODUCT USED FOR UNKNOWN INDICATION
     Dosage: SL
     Route: 060
     Dates: start: 20110801

REACTIONS (2)
  - APPARENT DEATH [None]
  - ANAPHYLACTIC REACTION [None]
